FAERS Safety Report 24292600 (Version 3)
Quarter: 2024Q4

REPORT INFORMATION
  Report Type: Spontaneous
  Country: US (occurrence: US)
  Receive Date: 20240906
  Receipt Date: 20241016
  Transmission Date: 20250115
  Serious: Yes (Other)
  Sender: ALEXION PHARMACEUTICALS
  Company Number: 2024A199929

PATIENT
  Weight: 87.1 kg

DRUGS (20)
  1. FASLODEX [Suspect]
     Active Substance: FULVESTRANT
     Dosage: UNK UNK, QMONTH
  2. FASLODEX [Suspect]
     Active Substance: FULVESTRANT
     Dosage: UNK UNK, QMONTH
  3. FASLODEX [Suspect]
     Active Substance: FULVESTRANT
     Dosage: UNK UNK, QMONTH
  4. FASLODEX [Suspect]
     Active Substance: FULVESTRANT
     Dosage: UNK UNK, QMONTH
  5. PALBOCICLIB [Suspect]
     Active Substance: PALBOCICLIB
     Dosage: 100 MILLIGRAM, QD
  6. PALBOCICLIB [Suspect]
     Active Substance: PALBOCICLIB
     Dosage: 100 MILLIGRAM, QD
  7. PALBOCICLIB [Suspect]
     Active Substance: PALBOCICLIB
     Dosage: 100 MILLIGRAM, QD
  8. PALBOCICLIB [Suspect]
     Active Substance: PALBOCICLIB
     Dosage: 100 MILLIGRAM, QD
  9. PALBOCICLIB [Suspect]
     Active Substance: PALBOCICLIB
     Dosage: 100 MG DAILY X 21 DAYS, THEN 7 DAYS OFF.
  10. PALBOCICLIB [Suspect]
     Active Substance: PALBOCICLIB
     Dosage: 100 MG DAILY X 21 DAYS, THEN 7 DAYS OFF.
  11. PALBOCICLIB [Suspect]
     Active Substance: PALBOCICLIB
     Dosage: 100 MG DAILY X 21 DAYS, THEN 7 DAYS OFF.
  12. PALBOCICLIB [Suspect]
     Active Substance: PALBOCICLIB
     Dosage: 100 MG DAILY X 21 DAYS, THEN 7 DAYS OFF.
  13. PALBOCICLIB [Suspect]
     Active Substance: PALBOCICLIB
     Dosage: 125 MILLIGRAM, UNK
  14. PALBOCICLIB [Suspect]
     Active Substance: PALBOCICLIB
     Dosage: 125 MILLIGRAM, UNK
  15. PALBOCICLIB [Suspect]
     Active Substance: PALBOCICLIB
     Dosage: 125 MILLIGRAM, UNK
  16. PALBOCICLIB [Suspect]
     Active Substance: PALBOCICLIB
     Dosage: 125 MILLIGRAM, UNK
  17. PALBOCICLIB [Suspect]
     Active Substance: PALBOCICLIB
     Dosage: 100 MILLIGRAM, UNK
  18. PALBOCICLIB [Suspect]
     Active Substance: PALBOCICLIB
     Dosage: 100 MILLIGRAM, UNK
  19. PALBOCICLIB [Suspect]
     Active Substance: PALBOCICLIB
     Dosage: 100 MILLIGRAM, UNK
  20. PALBOCICLIB [Suspect]
     Active Substance: PALBOCICLIB
     Dosage: 100 MILLIGRAM, UNK

REACTIONS (7)
  - Neutropenia [Recovering/Resolving]
  - Arthralgia [Unknown]
  - Anaemia [Recovering/Resolving]
  - Dizziness [Recovered/Resolved]
  - Fatigue [Recovering/Resolving]
  - White blood cell count decreased [Unknown]
  - Vomiting [Recovered/Resolved]
